FAERS Safety Report 22611297 (Version 1)
Quarter: 2023Q2

REPORT INFORMATION
  Report Type: Spontaneous
  Country: US (occurrence: None)
  Receive Date: 20230615
  Receipt Date: 20230615
  Transmission Date: 20230722
  Serious: No
  Sender: FDA-Public Use
  Company Number: None

PATIENT
  Age: 60 Year
  Sex: Male

DRUGS (1)
  1. OPSUMIT [Suspect]
     Active Substance: MACITENTAN
     Indication: Pulmonary arterial hypertension
     Dosage: FREQUENCY : DAILY;?
     Route: 048
     Dates: start: 20200108

REACTIONS (5)
  - Pleural effusion [None]
  - Cirrhosis alcoholic [None]
  - Right ventricular failure [None]
  - Right ventricular enlargement [None]
  - Cardiac septal defect [None]

NARRATIVE: CASE EVENT DATE: 20230609
